FAERS Safety Report 5659903-2 (Version None)
Quarter: 2008Q1

REPORT INFORMATION
  Report Type: 
  Country: None (occurrence: None)
  Receive Date: 20080311
  Receipt Date: 20071102
  Transmission Date: 20080703
  Serious: Yes (Other)
  Sender: FDA-Public Use
  Company Number: US-BAYER-200712582BCC

PATIENT
  Age: 58 Year
  Sex: Female
  Weight: 82 kg

DRUGS (3)
  1. ALEVE [Suspect]
     Indication: PAIN IN EXTREMITY
     Dosage: TOTAL DAILY DOSE: 220 MG  UNIT DOSE: 220 MG
     Route: 048
     Dates: start: 20070717, end: 20070717
  2. THYROID TAB [Concomitant]
     Dates: start: 19630101
  3. ESTRATEST [Concomitant]
     Dates: start: 19970101

REACTIONS (12)
  - ANAPHYLACTIC REACTION [None]
  - ANXIETY [None]
  - BLINDNESS [None]
  - BLOOD PRESSURE DECREASED [None]
  - BURNING SENSATION [None]
  - ERYTHEMA [None]
  - GENERALISED ERYTHEMA [None]
  - OEDEMA PERIPHERAL [None]
  - PARANOIA [None]
  - POST-TRAUMATIC STRESS DISORDER [None]
  - PRURITUS [None]
  - URTICARIA [None]
